FAERS Safety Report 8295651-0 (Version None)
Quarter: 2012Q2

REPORT INFORMATION
  Report Type: 
  Country: None (occurrence: None)
  Receive Date: 20120418
  Receipt Date: 20120416
  Transmission Date: 20120825
  Serious: Yes (Hospitalization, Disabling)
  Sender: FDA-Public Use
  Company Number: US-MERCK-1110USA01113

PATIENT
  Age: 54 Year
  Sex: Female
  Weight: 129 kg

DRUGS (1)
  1. FOSAMAX [Suspect]
     Indication: OSTEOPOROSIS
     Route: 048
     Dates: start: 19970101

REACTIONS (49)
  - ASTHMA [None]
  - CARDIAC FAILURE CONGESTIVE [None]
  - HYPERLIPIDAEMIA [None]
  - UTERINE DISORDER [None]
  - LOW TURNOVER OSTEOPATHY [None]
  - FALL [None]
  - PNEUMONIA [None]
  - DRUG HYPERSENSITIVITY [None]
  - JOINT EFFUSION [None]
  - LACRIMATION DECREASED [None]
  - HAEMARTHROSIS [None]
  - KERATITIS [None]
  - ANAEMIA [None]
  - CUSHING'S SYNDROME [None]
  - NEUROMA [None]
  - INTERVERTEBRAL DISC DISORDER [None]
  - MYOCARDIAL ISCHAEMIA [None]
  - ARTHROPOD INFESTATION [None]
  - PNEUMOTHORAX [None]
  - CONJUNCTIVITIS [None]
  - SINUS DISORDER [None]
  - CELLULITIS [None]
  - FEMUR FRACTURE [None]
  - EMPHYSEMA [None]
  - BREATH ODOUR [None]
  - RADICULOPATHY [None]
  - OSTEOARTHRITIS [None]
  - SLEEP APNOEA SYNDROME [None]
  - PERONEAL NERVE PALSY [None]
  - DEVICE FAILURE [None]
  - ARTHROPATHY [None]
  - CATARACT [None]
  - TOOTH ABSCESS [None]
  - DRY MOUTH [None]
  - DEPRESSION [None]
  - STATUS ASTHMATICUS [None]
  - ABSCESS ORAL [None]
  - ALTERED STATE OF CONSCIOUSNESS [None]
  - BLOOD CHOLESTEROL INCREASED [None]
  - INTERVERTEBRAL DISC PROTRUSION [None]
  - SPINAL COLUMN STENOSIS [None]
  - LOOSE TOOTH [None]
  - HYPERTENSION [None]
  - CARDIAC MURMUR [None]
  - BACK PAIN [None]
  - MIGRAINE [None]
  - CONTUSION [None]
  - HYPERSOMNIA [None]
  - CHRONIC OBSTRUCTIVE PULMONARY DISEASE [None]
